FAERS Safety Report 8992418 (Version 3)
Quarter: 2013Q3

REPORT INFORMATION
  Report Type: Report from Study
  Country: IL (occurrence: IL)
  Receive Date: 20121231
  Receipt Date: 20130715
  Transmission Date: 20140515
  Serious: Yes (Hospitalization)
  Sender: FDA-Public Use
  Company Number: IL-BRISTOL-MYERS SQUIBB COMPANY-17200940

PATIENT
  Age: 72 Year
  Sex: Male

DRUGS (3)
  1. SAXAGLIPTIN [Suspect]
     Indication: TYPE 2 DIABETES MELLITUS
     Dosage: LAST DOSE 13FB13
     Dates: start: 20110224
  2. METFORMIN HCL [Suspect]
     Indication: TYPE 2 DIABETES MELLITUS
     Dosage: UNK-27APR11:1700MG?28APR2011-1JUL12:850MG?2JUL12-4DEC12:425MG
     Dates: end: 20121204
  3. ASPIRIN [Concomitant]
     Dosage: 1 DF:{100MG

REACTIONS (1)
  - Gastroenteritis [Recovered/Resolved]
